FAERS Safety Report 15367003 (Version 1)
Quarter: 2018Q3

REPORT INFORMATION
  Report Type: Spontaneous
  Country: US (occurrence: US)
  Receive Date: 20180903
  Receipt Date: 20180903
  Transmission Date: 20181010
  Serious: Yes (Other)
  Sender: FDA-Public Use
  Company Number: None

PATIENT
  Age: 96 Year
  Sex: Male
  Weight: 72 kg

DRUGS (1)
  1. NITROFURANTOIN MONOHYDRATE MACROCRYSTALS [Suspect]
     Active Substance: NITROFURANTOIN\NITROFURANTOIN MONOHYDRATE
     Indication: URINARY TRACT INFECTION
     Dosage: ?          QUANTITY:28 TABLET(S);OTHER ROUTE:PEG TUBE?
     Dates: start: 20180712, end: 20180725

REACTIONS (2)
  - Urinary tract infection [None]
  - Condition aggravated [None]

NARRATIVE: CASE EVENT DATE: 20180712
